FAERS Safety Report 11507537 (Version 1)
Quarter: 2015Q3

REPORT INFORMATION
  Report Type: Spontaneous
  Country: US (occurrence: US)
  Receive Date: 20150903
  Receipt Date: 20150903
  Transmission Date: 20151125
  Serious: No
  Sender: FDA-Public Use
  Company Number: US-ELI_LILLY_AND_COMPANY-US200908004773

PATIENT
  Sex: Male

DRUGS (3)
  1. ACTOS /01460201/ [Concomitant]
  2. HUMALOG [Suspect]
     Active Substance: INSULIN LISPRO
  3. METFORMIN [Concomitant]
     Active Substance: METFORMIN HYDROCHLORIDE

REACTIONS (1)
  - Visual acuity reduced [Not Recovered/Not Resolved]
